FAERS Safety Report 5242214-7 (Version None)
Quarter: 2007Q1

REPORT INFORMATION
  Report Type: 
  Country: None (occurrence: None)
  Receive Date: 20070213
  Receipt Date: 20070131
  Transmission Date: 20070707
  Serious: Yes (Hospitalization)
  Sender: FDA-Public Use
  Company Number: T200700130

PATIENT
  Age: 63 Year
  Sex: Male
  Weight: 75.5 kg

DRUGS (3)
  1. OPTIRAY 350 [Suspect]
     Indication: ARTERIOGRAM CORONARY
     Dosage: 240 ML, SINGLE, INTRA-ARTERIAL
     Route: 013
     Dates: start: 20070123, end: 20070123
  2. HEPARIN [Concomitant]
  3. CLOPIDOGREL [Concomitant]

REACTIONS (3)
  - APHASIA [None]
  - DISORIENTATION [None]
  - RESTLESSNESS [None]
